FAERS Safety Report 22650135 (Version 1)
Quarter: 2023Q2

REPORT INFORMATION
  Report Type: Spontaneous
  Country: CN (occurrence: CN)
  Receive Date: 20230628
  Receipt Date: 20230628
  Transmission Date: 20230721
  Serious: Yes (Other)
  Sender: FDA-Public Use
  Company Number: CN-SA-SAC20230627000094

PATIENT
  Age: 78 Year
  Sex: Female
  Weight: 80 kg

DRUGS (5)
  1. ENOXAPARIN SODIUM [Suspect]
     Active Substance: ENOXAPARIN SODIUM
     Indication: Coagulopathy
     Dosage: 4000 IU, QD
     Route: 058
     Dates: start: 20230613, end: 20230616
  2. ENOXAPARIN SODIUM [Suspect]
     Active Substance: ENOXAPARIN SODIUM
     Indication: Thrombosis
     Dosage: 6000 IU, Q12H
     Route: 058
     Dates: start: 20230616, end: 20230617
  3. INDOBUFEN [Suspect]
     Active Substance: INDOBUFEN
     Indication: Coronavirus infection
     Dosage: 0.1 G, BID
     Route: 048
     Dates: start: 20230616, end: 20230616
  4. INDOBUFEN [Suspect]
     Active Substance: INDOBUFEN
     Indication: Atrial fibrillation
  5. INDOBUFEN [Suspect]
     Active Substance: INDOBUFEN
     Indication: Coagulopathy

REACTIONS (8)
  - Atrial fibrillation [Recovering/Resolving]
  - Upper gastrointestinal haemorrhage [Recovering/Resolving]
  - Abdominal pain [Recovering/Resolving]
  - Diarrhoea [Recovering/Resolving]
  - Melaena [Recovering/Resolving]
  - Faeces discoloured [Recovering/Resolving]
  - Supraventricular extrasystoles [Recovering/Resolving]
  - Palpitations [Recovering/Resolving]

NARRATIVE: CASE EVENT DATE: 20230616
